FAERS Safety Report 16789759 (Version 3)
Quarter: 2019Q4

REPORT INFORMATION
  Report Type: Spontaneous
  Country: GB (occurrence: GB)
  Receive Date: 20190910
  Receipt Date: 20191016
  Transmission Date: 20200122
  Serious: Yes (Life-Threatening, Hospitalization, Other)
  Sender: FDA-Public Use
  Company Number: GB-STRIDES ARCOLAB LIMITED-2019SP008475

PATIENT
  Age: 69 Year
  Sex: Male

DRUGS (8)
  1. GLICLAZIDE [Suspect]
     Active Substance: GLICLAZIDE
     Dosage: UNK, ONE MONTH SUPPLY OF REGULAR MEDICATION
     Route: 065
     Dates: start: 2019
  2. ISOSORBIDE MONONITRATE. [Suspect]
     Active Substance: ISOSORBIDE MONONITRATE
     Dosage: UNK, ONE MONTH SUPPLY OF REGULAR MEDICATION
     Route: 065
     Dates: start: 2019
  3. AMLODIPINE [Suspect]
     Active Substance: AMLODIPINE BESYLATE
     Dosage: UNK, ONE MONTH SUPPLY OF REGULAR MEDICATION
     Route: 065
     Dates: start: 2019
  4. METFORMIN [Suspect]
     Active Substance: METFORMIN HYDROCHLORIDE
     Indication: TYPE 2 DIABETES MELLITUS
     Dosage: 155 MG/KG (APPROXIMATE DOSE BY UNIT BODY MASS), UNK
     Route: 065
  5. AMLODIPINE [Suspect]
     Active Substance: AMLODIPINE BESYLATE
     Indication: HYPERTENSION
     Dosage: 3 MG/KG SINGLE MASSIVE OVER DOSE (APPROXIMATE DOSE BY UNIT BODY MASS)
     Route: 065
  6. GLICLAZIDE [Suspect]
     Active Substance: GLICLAZIDE
     Indication: TYPE 2 DIABETES MELLITUS
     Dosage: 12 MG/KG (APPROXIMATE DOSE BY UNIT BODY MASS), UNK
     Route: 065
  7. METFORMIN [Suspect]
     Active Substance: METFORMIN HYDROCHLORIDE
     Dosage: UNK, ONE MONTH SUPPLY OF REGULAR MEDICATION
     Route: 065
     Dates: start: 2019
  8. ISOSORBIDE MONONITRATE. [Suspect]
     Active Substance: ISOSORBIDE MONONITRATE
     Indication: PRODUCT USED FOR UNKNOWN INDICATION
     Dosage: 8 MG/KG (APPROXIMATE DOSE BY UNIT BODY MASS), UNK
     Route: 065

REACTIONS (8)
  - Fluid overload [Recovered/Resolved]
  - Oliguria [Recovered/Resolved]
  - Overdose [Unknown]
  - Dyspnoea [Recovered/Resolved]
  - Acute kidney injury [Recovered/Resolved]
  - Respiratory distress [Recovered/Resolved]
  - Metabolic acidosis [Recovered/Resolved]
  - Hypotension [Recovered/Resolved]

NARRATIVE: CASE EVENT DATE: 2019
